FAERS Safety Report 8954289 (Version 3)
Quarter: 2013Q1

REPORT INFORMATION
  Report Type: Spontaneous
  Country: JP (occurrence: JP)
  Receive Date: 20121210
  Receipt Date: 20130123
  Transmission Date: 20140127
  Serious: Yes (Other)
  Sender: FDA-Public Use
  Company Number: JP-GE HEALTHCARE MEDICAL DIAGNOSTICS-OMPQ-NO-1212S-1274

PATIENT
  Age: 76 Year
  Sex: Male
  Weight: 40 kg

DRUGS (6)
  1. OMNIPAQUE [Suspect]
     Indication: BILE DUCT CANCER RECURRENT
     Route: 042
     Dates: start: 20121127, end: 20121127
  2. OMNIPAQUE [Suspect]
     Indication: DIAGNOSTIC PROCEDURE
  3. PROTECADIN OD [Concomitant]
  4. URSO [Concomitant]
  5. LASIX [Concomitant]
  6. ALDACTONE-A [Concomitant]

REACTIONS (9)
  - Shock [Recovered/Resolved]
  - Fall [Recovered/Resolved]
  - Neurogenic shock [Recovered/Resolved]
  - Cold sweat [Recovered/Resolved]
  - Orthostatic hypotension [Recovered/Resolved]
  - Loss of consciousness [Recovered/Resolved]
  - Bradycardia [Recovered/Resolved]
  - Pallor [Recovered/Resolved]
  - Dizziness [Recovered/Resolved]
